FAERS Safety Report 13754280 (Version 1)
Quarter: 2017Q3

REPORT INFORMATION
  Report Type: Spontaneous
  Country: US (occurrence: US)
  Receive Date: 20170714
  Receipt Date: 20170714
  Transmission Date: 20171127
  Serious: Yes (Other)
  Sender: FDA-Public Use
  Company Number: US-LPDUSPRD-20170970

PATIENT
  Age: 60 Year
  Sex: Female

DRUGS (2)
  1. PAMIDRONATE DISODIUM INJECTION (0745-01) [Suspect]
     Active Substance: PAMIDRONATE DISODIUM
     Dosage: UNSPECIFIED
     Route: 065
  2. ALENDRONATE [Suspect]
     Active Substance: ALENDRONATE SODIUM
     Dosage: UNSPECIFIED

REACTIONS (2)
  - Fistula [Unknown]
  - Fracture [Unknown]
